FAERS Safety Report 4507855-0 (Version None)
Quarter: 2004Q4

REPORT INFORMATION
  Report Type: 
  Country: None (occurrence: None)
  Receive Date: 20041123
  Receipt Date: 20041115
  Transmission Date: 20050328
  Serious: Yes (Other)
  Sender: FDA-Public Use
  Company Number: PHBS2004JP15486

PATIENT
  Age: 66 Year
  Sex: Male

DRUGS (7)
  1. DIOVAN [Suspect]
     Dosage: 40 MG/DAY
     Route: 048
     Dates: start: 20030203, end: 20041031
  2. DIOVAN [Suspect]
     Dosage: 80 MG/DAY
     Route: 048
     Dates: start: 20041101
  3. LOXONIN [Suspect]
     Indication: UPPER RESPIRATORY TRACT INFECTION
     Dosage: 180 MG/DAY
     Route: 048
     Dates: start: 20041028, end: 20041031
  4. SELOKEN [Concomitant]
     Indication: HYPERTENSION
     Route: 048
     Dates: start: 20041101
  5. CEFZON [Concomitant]
     Dosage: 300 MG, UNK
     Route: 048
     Dates: start: 20041028, end: 20041101
  6. PL GRAN. [Concomitant]
     Dosage: 3 G, UNK
     Route: 048
     Dates: start: 20041028, end: 20041101
  7. MUCOSTA [Concomitant]
     Dosage: 300 MG, UNK
     Route: 048
     Dates: start: 20041028, end: 20041101

REACTIONS (4)
  - BLOOD PRESSURE INCREASED [None]
  - DRUG INTERACTION [None]
  - HEART RATE INCREASED [None]
  - UPPER RESPIRATORY TRACT INFECTION [None]
